FAERS Safety Report 15661307 (Version 2)
Quarter: 2019Q1

REPORT INFORMATION
  Report Type: Spontaneous
  Country: US (occurrence: US)
  Receive Date: 20181127
  Receipt Date: 20190109
  Transmission Date: 20190417
  Serious: Yes (Other)
  Sender: FDA-Public Use
  Company Number: US-NOVOPROD-633837

PATIENT
  Age: 75 Year
  Sex: Male

DRUGS (2)
  1. NOVOLOG [Suspect]
     Active Substance: INSULIN ASPART
     Indication: TYPE 1 DIABETES MELLITUS
     Dosage: SLIDING SCALE
     Route: 058
     Dates: start: 201703, end: 20181117
  2. NOVOLOG [Suspect]
     Active Substance: INSULIN ASPART
     Dosage: RESTARTED
     Route: 058

REACTIONS (11)
  - Hyperhidrosis [Recovered/Resolved]
  - Tachycardia [Unknown]
  - Nervousness [Unknown]
  - Blood glucose increased [Unknown]
  - Myocardial infarction [Unknown]
  - Vomiting [Recovered/Resolved]
  - Drug effect decreased [Unknown]
  - Diarrhoea [Recovered/Resolved]
  - Product quality issue [Unknown]
  - Dehydration [Recovered/Resolved]
  - Anxiety [Recovered/Resolved]

NARRATIVE: CASE EVENT DATE: 2018
